FAERS Safety Report 7320565-X (Version None)
Quarter: 2011Q1

REPORT INFORMATION
  Report Type: 
  Country: None (occurrence: None)
  Receive Date: 20110215
  Receipt Date: 20110124
  Transmission Date: 20110831
  Serious: Yes (Other)
  Sender: FDA-Public Use
  Company Number: 027264

PATIENT
  Age: 73 Year
  Sex: Male

DRUGS (1)
  1. XYZAL [Suspect]
     Dosage: (5 MG QD ORAL)
     Route: 048
     Dates: start: 20101214, end: 20110113

REACTIONS (1)
  - LIVER DISORDER [None]
